FAERS Safety Report 6779701-6 (Version None)
Quarter: 2010Q2

REPORT INFORMATION
  Report Type: 
  Country: None (occurrence: None)
  Receive Date: 20100618
  Receipt Date: 20100608
  Transmission Date: 20101027
  Serious: Yes (Other)
  Sender: FDA-Public Use
  Company Number: PHEH2009US01388

PATIENT
  Sex: Female

DRUGS (33)
  1. AREDIA [Suspect]
     Indication: MULTIPLE MYELOMA
     Dosage: 90 MG, EVERY 3 MONTHS
     Dates: start: 20000530
  2. HYDROCHLOROTHIAZIDE [Concomitant]
  3. LISINOPRIL AND HYDROCHLOROTHIAZIDE [Concomitant]
  4. THALIDOMIDE [Concomitant]
     Dosage: UNK
     Dates: start: 20050301, end: 20090716
  5. DECADRON [Concomitant]
     Dosage: UNK
  6. AMIFOSTINE [Concomitant]
     Dosage: UNK
  7. MELPHALAN HYDROCHLORIDE [Concomitant]
     Dosage: UNK
  8. PRILOSEC [Concomitant]
     Dosage: UNK
  9. PROCRIT                            /00909301/ [Concomitant]
     Dosage: UNK
  10. VALTREX [Concomitant]
     Dosage: UNK
  11. BACTRIM [Concomitant]
     Dosage: UNK
  12. FLUCONAZOLE [Concomitant]
     Dosage: UNK
  13. CHLORHEXIDINE [Concomitant]
     Dosage: UNK
  14. ZOFRAN [Concomitant]
     Dosage: UNK
  15. ATIVAN [Concomitant]
     Dosage: UNK
  16. COMPAZINE [Concomitant]
     Dosage: UNK
  17. ACYCLOVIR [Concomitant]
  18. ACTIVASE [Concomitant]
     Dosage: UNK
  19. IMIPENEM [Concomitant]
     Dosage: UNK
  20. AMPICILLIN [Concomitant]
     Dosage: 500 MG, UNK
  21. CIPRO [Concomitant]
     Dosage: 500 MG, UNK
  22. MAGIC MOUTHWASH [Concomitant]
  23. LEVAQUIN [Concomitant]
  24. FLAGYL [Concomitant]
  25. PREMPRO [Concomitant]
  26. AUGMENTIN '125' [Concomitant]
  27. DOXYCYCLINE [Concomitant]
  28. SULFAMETHOXAZOLE [Concomitant]
  29. PENICILLIN ^GRUNENTHAL^ [Concomitant]
  30. BIAXIN XL [Concomitant]
  31. PROMETHAZINE DM [Concomitant]
  32. VICODIN [Concomitant]
  33. RESTYLANE [Concomitant]

REACTIONS (33)
  - ANHEDONIA [None]
  - ANXIETY [None]
  - BASAL CELL CARCINOMA [None]
  - BONE DEBRIDEMENT [None]
  - BONE DISORDER [None]
  - CARDIOMEGALY [None]
  - CATHETER PLACEMENT [None]
  - DISCOMFORT [None]
  - EAR PAIN [None]
  - EMOTIONAL DISTRESS [None]
  - FISTULA [None]
  - HYPERTENSION [None]
  - INJURY [None]
  - LIFE EXPECTANCY SHORTENED [None]
  - MASTICATION DISORDER [None]
  - MUCOSAL INFLAMMATION [None]
  - NAUSEA [None]
  - NEUROPATHY PERIPHERAL [None]
  - OSTEONECROSIS OF JAW [None]
  - OSTEOPENIA [None]
  - OSTEOPOROSIS [None]
  - PAIN [None]
  - PAIN IN JAW [None]
  - PARAESTHESIA ORAL [None]
  - PHYSICAL DISABILITY [None]
  - PRIMARY SEQUESTRUM [None]
  - SCAR [None]
  - SINUS CONGESTION [None]
  - SKIN NEOPLASM EXCISION [None]
  - SPINAL OSTEOARTHRITIS [None]
  - STEM CELL TRANSPLANT [None]
  - TOOTH EXTRACTION [None]
  - VOMITING [None]
